FAERS Safety Report 14319840 (Version 1)
Quarter: 2017Q4

REPORT INFORMATION
  Report Type: Spontaneous
  Country: US (occurrence: US)
  Receive Date: 20171221
  Receipt Date: 20171221
  Transmission Date: 20180321
  Serious: Yes (Other)
  Sender: FDA-Public Use
  Company Number: None

PATIENT
  Age: 44 Year
  Sex: Male
  Weight: 187 kg

DRUGS (1)
  1. DAPTOMYCIN 1000MG HOSPIRA [Suspect]
     Active Substance: DAPTOMYCIN
     Indication: DIABETIC FOOT
     Dosage: 1000MG Q24H IVP
     Route: 042
     Dates: start: 20171215

REACTIONS (4)
  - Hypertension [None]
  - Chest discomfort [None]
  - Seizure [None]
  - Dyspnoea [None]

NARRATIVE: CASE EVENT DATE: 20171220
